FAERS Safety Report 10073676 (Version 1)
Quarter: 2014Q2

REPORT INFORMATION
  Report Type: Spontaneous
  Country: AU (occurrence: AU)
  Receive Date: 20140411
  Receipt Date: 20140411
  Transmission Date: 20141212
  Serious: Yes (Other)
  Sender: FDA-Public Use
  Company Number: AU-WATSON-2014-07335

PATIENT
  Sex: Male

DRUGS (3)
  1. DEXTROAMPHETAMINE SAC/SLF, AMPHETAMINE ASP/SLF (MIXED SALTS)(WATSON) [Suspect]
     Indication: DRUG ABUSE
     Dosage: UNK
     Route: 064
  2. IRON [Concomitant]
     Indication: ANAEMIA
     Route: 064
  3. BETAMETHASONE [Concomitant]
     Indication: MATERNAL THERAPY TO ENHANCE FOETAL LUNG MATURITY
     Dosage: UNK
     Route: 064

REACTIONS (4)
  - Foetal growth restriction [Unknown]
  - Foetal heart rate increased [Recovering/Resolving]
  - Hypoglycaemia [Unknown]
  - Foetal exposure during pregnancy [Unknown]
